FAERS Safety Report 16967540 (Version 1)
Quarter: 2019Q4

REPORT INFORMATION
  Report Type: Report from Study
  Country: None (occurrence: IT)
  Receive Date: 20191028
  Receipt Date: 20191028
  Transmission Date: 20200122
  Serious: Yes (Hospitalization, Other)
  Sender: FDA-Public Use
  Company Number: IT-ABBVIE-19K-083-2979990-00

PATIENT
  Age: 77 Year
  Sex: Female

DRUGS (1)
  1. DUODOPA [Suspect]
     Active Substance: CARBIDOPA\LEVODOPA
     Indication: PARKINSON^S DISEASE
     Dosage: MD: 4+3 CR: 0,9 ED: 0,9
     Route: 050
     Dates: start: 20150713, end: 20191021

REACTIONS (2)
  - General physical health deterioration [Unknown]
  - Stoma site infection [Unknown]

NARRATIVE: CASE EVENT DATE: 201910
